FAERS Safety Report 7571802-8 (Version None)
Quarter: 2011Q2

REPORT INFORMATION
  Report Type: 
  Country: None (occurrence: None)
  Receive Date: 20110624
  Receipt Date: 20110613
  Transmission Date: 20111010
  Serious: Yes (Death)
  Sender: FDA-Public Use
  Company Number: JP-ELI_LILLY_AND_COMPANY-JP201106003954

PATIENT
  Age: 85 Year
  Sex: Male

DRUGS (1)
  1. FORTEO [Suspect]
     Route: 058

REACTIONS (1)
  - DEATH [None]
